FAERS Safety Report 26198529 (Version 1)
Quarter: 2025Q4

REPORT INFORMATION
  Report Type: Spontaneous
  Country: EU (occurrence: EU)
  Receive Date: 20251224
  Receipt Date: 20251224
  Transmission Date: 20260117
  Serious: Yes (Hospitalization)
  Sender: PRINSTON PHARMACEUTICAL
  Company Number: EU-PRINSTON PHARMACEUTICAL INC.-2025PRN00416

PATIENT
  Age: 51 Year
  Sex: Female

DRUGS (6)
  1. PREGABALIN [Suspect]
     Active Substance: PREGABALIN
     Indication: Vulvovaginal discomfort
     Dosage: 150 MG, 1X/DAY
  2. PREGABALIN [Suspect]
     Active Substance: PREGABALIN
     Dosage: 300 MG, 1X/DAY (DOSE INCREASED)
  3. MEDROXYPROGESTERONE ACETATE [Suspect]
     Active Substance: MEDROXYPROGESTERONE ACETATE
     Indication: Haemorrhage
     Dosage: UNK
  4. TRAZODONE [Suspect]
     Active Substance: TRAZODONE HYDROCHLORIDE
     Indication: Sleep disorder
     Dosage: 50 MG, 1X/DAY
  5. TRAZODONE [Suspect]
     Active Substance: TRAZODONE HYDROCHLORIDE
     Dosage: 75 MG, 1X/DAY
  6. ESTRIOL [Suspect]
     Active Substance: ESTRIOL
     Indication: Vulvovaginal discomfort
     Dosage: 1 MILLIGRAM PER GRAM, 3X/WEEK

REACTIONS (2)
  - Persistent genital arousal disorder [Recovered/Resolved]
  - Drug interaction [Recovered/Resolved]
